FAERS Safety Report 17650041 (Version 1)
Quarter: 2020Q2

REPORT INFORMATION
  Report Type: Spontaneous
  Country: US (occurrence: US)
  Receive Date: 20200409
  Receipt Date: 20200409
  Transmission Date: 20200713
  Serious: Yes (Other)
  Sender: FDA-Public Use
  Company Number: US-SUN PHARMACEUTICAL INDUSTRIES LTD-2020R1-242808

PATIENT
  Age: 16 Year
  Sex: Male

DRUGS (3)
  1. METHOTREXATE. [Suspect]
     Active Substance: METHOTREXATE
     Indication: CROHN^S DISEASE
     Dosage: 10 MILLIGRAM, WEEKLY
     Route: 048
     Dates: start: 2014, end: 2016
  2. METHOTREXATE. [Suspect]
     Active Substance: METHOTREXATE
     Dosage: 10 MILLIGRAM, WEEKLY
     Route: 048
     Dates: start: 2014, end: 2016
  3. INFLIXIMAB [Suspect]
     Active Substance: INFLIXIMAB
     Indication: CROHN^S DISEASE
     Dosage: 10MG/KG/EVERY 6 WEEKS
     Route: 065

REACTIONS (2)
  - Non-Hodgkin^s lymphoma [Unknown]
  - B-cell lymphoma [Unknown]
